FAERS Safety Report 11722751 (Version 3)
Quarter: 2016Q1

REPORT INFORMATION
  Report Type: Spontaneous
  Country: JP (occurrence: JP)
  Receive Date: 20151111
  Receipt Date: 20160208
  Transmission Date: 20160525
  Serious: Yes (Hospitalization, Other)
  Sender: FDA-Public Use
  Company Number: JP-ELI_LILLY_AND_COMPANY-JP201509001654

PATIENT
  Age: 76 Year
  Sex: Female
  Weight: 54 kg

DRUGS (6)
  1. PARAPLATIN [Suspect]
     Active Substance: CARBOPLATIN
     Dosage: 200 MG, OTHER
     Route: 042
     Dates: start: 20150818, end: 20150818
  2. METHYCOBAL [Concomitant]
     Active Substance: METHYLCOBALAMIN
     Indication: PROPHYLAXIS
     Dosage: 1000 UG, UNK
     Route: 030
     Dates: start: 20150511, end: 20151027
  3. ALIMTA [Suspect]
     Active Substance: PEMETREXED DISODIUM
     Indication: LUNG ADENOCARCINOMA STAGE III
     Dosage: 560 MG, OTHER
     Route: 042
     Dates: start: 20150526, end: 20150818
  4. ALIMTA [Suspect]
     Active Substance: PEMETREXED DISODIUM
     Dosage: 560 MG, OTHER
     Route: 042
     Dates: start: 20150915, end: 20151006
  5. PARAPLATIN [Suspect]
     Active Substance: CARBOPLATIN
     Indication: LUNG ADENOCARCINOMA STAGE III
     Dosage: 300 MG, OTHER
     Route: 042
     Dates: start: 20150526, end: 20150716
  6. PANVITAN                           /05664401/ [Concomitant]
     Indication: PROPHYLAXIS
     Dosage: 1 G, EACH MORNING
     Route: 048
     Dates: start: 20150511, end: 20151109

REACTIONS (9)
  - Platelet count decreased [Recovering/Resolving]
  - Polyp [Unknown]
  - Goitre [Unknown]
  - Pneumatosis intestinalis [Recovering/Resolving]
  - Haemoglobin decreased [Unknown]
  - Gastric haemorrhage [Unknown]
  - Haemorrhagic anaemia [Unknown]
  - Neutrophil count decreased [Recovered/Resolved]
  - Off label use [Recovered/Resolved]

NARRATIVE: CASE EVENT DATE: 2015
